FAERS Safety Report 4932019-6 (Version None)
Quarter: 2006Q1

REPORT INFORMATION
  Report Type: 
  Country: None (occurrence: None)
  Receive Date: 20060303
  Receipt Date: 20060222
  Transmission Date: 20060701
  Serious: Yes (Disabling)
  Sender: FDA-Public Use
  Company Number: 435957

PATIENT
  Age: 65 Year
  Sex: Male

DRUGS (4)
  1. DILATREND [Suspect]
     Indication: CARDIOMYOPATHY
     Route: 065
  2. ATACAND [Concomitant]
  3. WARFARIN SODIUM [Concomitant]
  4. LASIX [Concomitant]

REACTIONS (1)
  - GOUT [None]
